FAERS Safety Report 14640336 (Version 3)
Quarter: 2018Q2

REPORT INFORMATION
  Report Type: Report from Study
  Country: BR (occurrence: BR)
  Receive Date: 20180315
  Receipt Date: 20180614
  Transmission Date: 20180711
  Serious: Yes (Other)
  Sender: FDA-Public Use
  Company Number: PHHY2016BR015220

PATIENT
  Sex: Female
  Weight: 36 kg

DRUGS (6)
  1. EXJADE [Suspect]
     Active Substance: DEFERASIROX
     Indication: SICKLE CELL ANAEMIA
     Dosage: 500 MG (20 MG/KG), QD
     Route: 048
     Dates: start: 201310
  2. EXJADE [Suspect]
     Active Substance: DEFERASIROX
     Dosage: 1500 MG, QD
     Route: 048
  3. EXJADE [Suspect]
     Active Substance: DEFERASIROX
     Dosage: 625 MG (25 MG/KG, 1 DF OF 500 MG AND 1 DF OF 125 MG) QD
     Route: 048
  4. HYDROXYUREA. [Concomitant]
     Active Substance: HYDROXYUREA
     Indication: ANAEMIA
     Route: 065
  5. EXJADE [Suspect]
     Active Substance: DEFERASIROX
     Dosage: 1000 MG (35 MG/KG, 2 DF OF 500 MG), QD
     Route: 065
  6. EXJADE [Suspect]
     Active Substance: DEFERASIROX
     Dosage: 500 MG, TID
     Route: 048

REACTIONS (7)
  - Serum ferritin increased [Not Recovered/Not Resolved]
  - Renal disorder [Unknown]
  - Headache [Not Recovered/Not Resolved]
  - Memory impairment [Unknown]
  - Sinusitis [Unknown]
  - Nephrolithiasis [Unknown]
  - Rhinitis [Unknown]
